FAERS Safety Report 8219738-3 (Version None)
Quarter: 2012Q1

REPORT INFORMATION
  Report Type: 
  Country: None (occurrence: None)
  Receive Date: 20120319
  Receipt Date: 20120309
  Transmission Date: 20120608
  Serious: Yes (Other)
  Sender: FDA-Public Use
  Company Number: CA-GILEAD-2012-0052285

PATIENT
  Sex: Male

DRUGS (1)
  1. AMBRISENTAN [Suspect]
     Indication: PULMONARY HYPERTENSION
     Dosage: 10MG PER DAY
     Route: 048
     Dates: start: 20101221

REACTIONS (3)
  - MYOCARDIAL INFARCTION [None]
  - PANIC ATTACK [None]
  - CHEST DISCOMFORT [None]
